FAERS Safety Report 16046440 (Version 2)
Quarter: 2020Q1

REPORT INFORMATION
  Report Type: Report from Study
  Country: FR (occurrence: FR)
  Receive Date: 20190307
  Receipt Date: 20200310
  Transmission Date: 20200409
  Serious: Yes (Death, Hospitalization, Other)
  Sender: FDA-Public Use
  Company Number: PHHY2019FR048385

PATIENT
  Age: 66 Year
  Sex: Male
  Weight: 100 kg

DRUGS (4)
  1. MEKINIST [Suspect]
     Active Substance: TRAMETINIB DIMETHYL SULFOXIDE
     Indication: LUNG NEOPLASM MALIGNANT
     Dosage: UNK
     Route: 048
     Dates: start: 20190128
  2. MEKINIST [Suspect]
     Active Substance: TRAMETINIB DIMETHYL SULFOXIDE
     Dosage: 2 MG, UNK (IN THE EVENING)
     Route: 048
     Dates: end: 20191212
  3. DABRAFENIB [Suspect]
     Active Substance: DABRAFENIB
     Indication: LUNG NEOPLASM MALIGNANT
     Dosage: UNK
     Route: 048
     Dates: start: 20190128
  4. DABRAFENIB [Suspect]
     Active Substance: DABRAFENIB
     Dosage: 75 MG, (TWO INTAKES IN THE MORNING AND TWO INTAKES IN THE EVENING)
     Route: 048
     Dates: end: 20191212

REACTIONS (7)
  - Electrocardiogram QT prolonged [Recovered/Resolved]
  - Hypokalaemia [Unknown]
  - Malignant neoplasm progression [Unknown]
  - Malignant ascites [Fatal]
  - Nausea [Recovered/Resolved]
  - Pleural effusion [Unknown]
  - Lung neoplasm malignant [Unknown]

NARRATIVE: CASE EVENT DATE: 20191206
